FAERS Safety Report 5134825-4 (Version None)
Quarter: 2006Q4

REPORT INFORMATION
  Report Type: 
  Country: None (occurrence: None)
  Receive Date: 20061025
  Receipt Date: 20060928
  Transmission Date: 20070319
  Serious: Yes (Death)
  Sender: FDA-Public Use
  Company Number: US-PURDUE-USA_2006_0025270

PATIENT
  Age: 19 Year
  Sex: Female

DRUGS (2)
  1. OXYCONTIN [Suspect]
     Indication: BACK PAIN
     Dosage: 20 MG, BID
     Dates: start: 20050101, end: 20060909
  2. SOMA [Suspect]
     Indication: BACK PAIN
     Dosage: 1 TABLET, TID
     Dates: start: 20060501, end: 20060909

REACTIONS (1)
  - DEATH [None]
